FAERS Safety Report 7706727 (Version 4)
Quarter: 2012Q4

REPORT INFORMATION
  Report Type: 
  Country: FR (occurrence: FR)
  Receive Date: 20101214
  Receipt Date: 20121030
  Transmission Date: 20130627
  Serious: Yes (Hospitalization, Other)
  Sender: FDA-Public Use
  Company Number: FR-BRISTOL-MYERS SQUIBB COMPANY-15429202

PATIENT
  Age: 44 Year
  Sex: Male

DRUGS (2)
  1. REYATAZ CAPS [Suspect]
     Indication: HIV INFECTION
     Dosage: Duration-5 years.
     Route: 048
     Dates: start: 200502, end: 20100213
  2. TRUVADA [Concomitant]
     Dates: start: 200606

REACTIONS (4)
  - Cholelithiasis [Recovered/Resolved with Sequelae]
  - Transaminases increased [Recovered/Resolved]
  - Blood alkaline phosphatase increased [Recovered/Resolved]
  - Hepatic steatosis [Recovered/Resolved]
